FAERS Safety Report 18046530 (Version 2)
Quarter: 2020Q3

REPORT INFORMATION
  Report Type: Report from Study
  Country: US (occurrence: US)
  Receive Date: 20200720
  Receipt Date: 20200722
  Transmission Date: 20201103
  Serious: Yes (Hospitalization)
  Sender: FDA-Public Use
  Company Number: US-BIOGEN-2020BI00873342

PATIENT
  Age: 33 Year
  Sex: Male

DRUGS (30)
  1. CYANOCOBALAMIN (VITAMIN B?12) [Concomitant]
     Indication: PRODUCT USED FOR UNKNOWN INDICATION
     Dosage: TAKE 1 TABLET (1000 MCG TOTAL) BY MOUTH DAILY WITH BREAKFAST
     Route: 048
  2. ZANAFLEX [Concomitant]
     Active Substance: TIZANIDINE HYDROCHLORIDE
     Indication: PRODUCT USED FOR UNKNOWN INDICATION
     Dosage: TAKE 4 MG BY MOUTH 3 (THREE) TIMES A DAY
     Route: 048
  3. TYLENOL [Concomitant]
     Active Substance: ACETAMINOPHEN
     Indication: PAIN
     Dosage: TAKE 650 MG BY MOUTH EVERY 6 (SIX) HOURS AS NEEDED FOR MILD PAIN
     Route: 048
  4. ASCORBIC ACID (VITAMIN C) [Concomitant]
     Active Substance: ASCORBIC ACID
     Indication: PRODUCT USED FOR UNKNOWN INDICATION
     Dosage: TAKE 500 MG BY MOUTH EVERY MORNING
     Route: 048
  5. METRONIDAZOLE (METROGEL) [Concomitant]
     Indication: PRODUCT USED FOR UNKNOWN INDICATION
     Dosage: APPLY 1 APPLICATION TOPICALLY DAILY
     Route: 065
  6. TYSABRI [Suspect]
     Active Substance: NATALIZUMAB
     Indication: MULTIPLE SCLEROSIS
     Route: 065
     Dates: start: 20090930, end: 20111018
  7. CALCIUM CARBONATE?VITAMIN D3 (OS?CAL W/D) [Concomitant]
     Indication: PRODUCT USED FOR UNKNOWN INDICATION
     Dosage: TAKE 2 TABLETS BY MOUTH 2 (TWO) TIMES A DAY WITH MEALS. ONE TAB QD
     Route: 048
  8. CHOLECALCIFEROL [Concomitant]
     Active Substance: CHOLECALCIFEROL
     Indication: PRODUCT USED FOR UNKNOWN INDICATION
     Dosage: TAKE 2000 UNITS BY MOUTH 2 (TWO) TIMES A DAY WITH MEALS
     Route: 048
  9. CLOTRIMAZOLE (LOTRIMIN) [Concomitant]
     Indication: PRODUCT USED FOR UNKNOWN INDICATION
     Dosage: APPLY TOPICALLY 2(TWO) TIMES A DAY
     Route: 065
  10. HYDROCORTISONE. [Concomitant]
     Active Substance: HYDROCORTISONE
     Indication: PRODUCT USED FOR UNKNOWN INDICATION
     Dosage: APPLY 1 APPLICATION TOPICALLY 2 (TWO) TIMES A DAY. APPLY TO AFFECTED AREA TWICE DAILY UNTIL RESOLVED
     Route: 065
  11. ONDANSETRON ODT (ZOFRAN?ODT) [Concomitant]
     Indication: NAUSEA
     Dosage: TAKE 4 MG BY MOUTH EVERY 8 (EIGHT) HOURS AS NEEDED FOR NAUSEA OR VOMITING
     Route: 048
  12. ZOCOR [Concomitant]
     Active Substance: SIMVASTATIN
     Indication: PRODUCT USED FOR UNKNOWN INDICATION
     Dosage: TAKE 20 MG BY MOUTH NIGHTLY
     Route: 048
  13. IBUPROFEN (ADVIL) [Concomitant]
     Indication: PAIN
     Dosage: TAKE 200 MG BY MOUTH EVERY 6 (SIX) HOURS AS NEEDED FOR MILD PAIN OR FEVER
     Route: 048
  14. MOBIC [Concomitant]
     Active Substance: MELOXICAM
     Indication: ARTHRALGIA
     Dosage: TAKE 7.5 MG BY MOUTH DAILY WITH BREAKFAST
     Route: 048
  15. NITROFURANTOIN, MACROCRYSTAL?MONOHYDRATE (MACROBID) [Concomitant]
     Indication: PRODUCT USED FOR UNKNOWN INDICATION
     Dosage: TAKE 100 MG BY MOUTH 2 (TWO) TIMES A DAY
     Route: 048
  16. DIPHENHYDRAMINE (BENADRYL) [Concomitant]
     Indication: PRURITUS
     Dosage: TAKE 25 MG BY MOUTH EVERY 8 (EIGHT) HOURS AS NEEDED FOR ITCHING
     Route: 048
  17. FOLIC ACID (FOLVITE) [Concomitant]
     Indication: PRODUCT USED FOR UNKNOWN INDICATION
     Dosage: TAKE 1 TABLET (1 MG TOTAL) BY MOUTH DAILY WITH BREAKFAST
     Route: 048
  18. PRILOSEC [Concomitant]
     Active Substance: OMEPRAZOLE MAGNESIUM
     Indication: PRODUCT USED FOR UNKNOWN INDICATION
     Dosage: TAKE 20 MG BY MOUTH DAILY
     Route: 048
  19. CAL?D3?MAG11?ZINC?COP?MANG?BOR (CALTRATE 600?D PLUS MINERALS) 600 M... [Concomitant]
     Indication: PRODUCT USED FOR UNKNOWN INDICATION
     Dosage: TAKE 1 TABLET BY MOUTH 2 (TWO) TIMES A DAY
     Route: 048
  20. CHLORHEXIDINE (PERIDEX) [Concomitant]
     Indication: PRODUCT USED FOR UNKNOWN INDICATION
     Dosage: APPLY 15 ML TO THE MOUTH OR THROAT 2 (TWO) TIMES A DAY.
     Route: 065
  21. GABAPENTIN ENACARBIL (HORIZANT) [Concomitant]
     Indication: PRODUCT USED FOR UNKNOWN INDICATION
     Dosage: TAKE 600 MG BY MOUTH 2 (TWO) TIMES A DAY
     Route: 048
  22. PROVIGIL [Concomitant]
     Active Substance: MODAFINIL
     Indication: PRODUCT USED FOR UNKNOWN INDICATION
     Dosage: TAKE 200 MG BY MOUTH 2(TWO) TIMES A DAY 0800/1600
     Route: 048
  23. SULFAMETHOXAZOLE?TRIMETHOPRIM (SULFATRIM) [Concomitant]
     Indication: PRODUCT USED FOR UNKNOWN INDICATION
     Dosage: TAKE BY MOUTH 2(TWO) TIMES A DAY
     Route: 048
  24. TYSABRI [Suspect]
     Active Substance: NATALIZUMAB
     Route: 065
     Dates: start: 20120411
  25. COLACE [Concomitant]
     Active Substance: DOCUSATE SODIUM
     Indication: PRODUCT USED FOR UNKNOWN INDICATION
     Dosage: TAKE 100 MG BY MOUTH 2 (TWO) TIMES A DAY
     Route: 048
  26. HYDROCODONE ACETAMINOPHEN (NORCO) 5?325 MG [Concomitant]
     Indication: PAIN
     Dosage: TAKE 1?2 TABLETS BY MOUTH EVERY 6 (SIX) HOURS AS NEEDED FOR MODERATE PAIN (PAIN) NO MORE THAN 8 T...
     Route: 048
  27. OLOPATADINE (PATANOL) [Concomitant]
     Indication: PRODUCT USED FOR UNKNOWN INDICATION
     Dosage: 1 DROP 2(TWO) TIMES A DAY
     Route: 065
  28. ACETIC ACID 0.25 IRRIGATION [Concomitant]
     Indication: CATHETER MANAGEMENT
     Dosage: IRRIGATE WITH 120 ML AS DIRECTED 2 (TWO) TIMES A DAY TO MAINTAIN CATHETER PATENCY
     Route: 065
  29. MAGNESIUM HYDROXIDE (MOM) [Concomitant]
     Indication: CONSTIPATION
     Dosage: TAKE 30 ML (2,400 MG TOTAL) BY MOUTH NIGHTLY AS NEEDED (CONSTIPATION)
     Route: 048
  30. SENNA (SENOKOT) [Concomitant]
     Indication: PRODUCT USED FOR UNKNOWN INDICATION
     Dosage: TAKE 1 TABLET BY MOUTH 2(TWO) TIMES A DAY
     Route: 048

REACTIONS (2)
  - Nephrolithiasis [Recovered/Resolved]
  - Device related sepsis [Recovered/Resolved]

NARRATIVE: CASE EVENT DATE: 202002
